FAERS Safety Report 12791124 (Version 1)
Quarter: 2016Q3

REPORT INFORMATION
  Report Type: Spontaneous
  Country: DE (occurrence: DE)
  Receive Date: 20160929
  Receipt Date: 20160929
  Transmission Date: 20161109
  Serious: Yes (Other)
  Sender: FDA-Public Use
  Company Number: DE-DRREDDYS-GER/GER/16/0083647

PATIENT
  Age: 28 Year
  Sex: Female
  Weight: 74 kg

DRUGS (3)
  1. VENLAFAXINE [Suspect]
     Active Substance: VENLAFAXINE HYDROCHLORIDE
     Indication: DEPRESSION
     Dosage: 150 MG/D  REDUCTION IN LAST TRIMESTER TO 75 MG/D
     Route: 048
     Dates: start: 20150913, end: 20160606
  2. FEMIBION [Concomitant]
     Active Substance: VITAMINS
     Indication: VITAMIN SUPPLEMENTATION
     Route: 048
     Dates: start: 20151201, end: 20160606
  3. VOMEX A SUPPOSITORIEN [Suspect]
     Active Substance: DIMENHYDRINATE
     Indication: VOMITING IN PREGNANCY
     Route: 054

REACTIONS (4)
  - Breech presentation [Unknown]
  - Exposure during pregnancy [Recovered/Resolved]
  - Amniotic fluid volume increased [Unknown]
  - Caesarean section [None]
